FAERS Safety Report 10215062 (Version 3)
Quarter: 2014Q2

REPORT INFORMATION
  Report Type: Spontaneous
  Country: US (occurrence: US)
  Receive Date: 20140603
  Receipt Date: 20140626
  Transmission Date: 20141212
  Serious: Yes (Other)
  Sender: FDA-Public Use
  Company Number: US-TEVA-485714USA

PATIENT
  Age: 26 Year
  Sex: Female

DRUGS (1)
  1. PARAGARD 380A [Suspect]
     Indication: CONTRACEPTION
     Route: 015
     Dates: start: 20140326, end: 20140521

REACTIONS (5)
  - Device dislocation [Recovered/Resolved]
  - Haemorrhage [Unknown]
  - Device dislocation [Unknown]
  - Medical device complication [Unknown]
  - Muscle spasms [Unknown]
